FAERS Safety Report 4416458-8 (Version None)
Quarter: 2004Q3

REPORT INFORMATION
  Report Type: 
  Country: None (occurrence: None)
  Receive Date: 20040805
  Receipt Date: 20040728
  Transmission Date: 20050211
  Serious: Yes (Other)
  Sender: FDA-Public Use
  Company Number: PHEH2004US08181

PATIENT
  Age: 74 Year
  Sex: Male
  Weight: 86 kg

DRUGS (3)
  1. LOPRESSOR [Suspect]
     Dosage: 50 MG, BID
     Route: 048
     Dates: start: 20040611, end: 20040612
  2. LOPRESSOR [Suspect]
     Dosage: 25 MG, BID
     Dates: start: 20040612, end: 20040624
  3. ASPIRIN [Concomitant]

REACTIONS (4)
  - BLOOD PRESSURE DECREASED [None]
  - BRADYCARDIA [None]
  - SICK SINUS SYNDROME [None]
  - VENTRICULAR EXTRASYSTOLES [None]
